FAERS Safety Report 8879311 (Version 3)
Quarter: 2013Q1

REPORT INFORMATION
  Report Type: Report from Study
  Country: JP (occurrence: JP)
  Receive Date: 20121101
  Receipt Date: 20130311
  Transmission Date: 20140127
  Serious: Yes (Hospitalization)
  Sender: FDA-Public Use
  Company Number: JP-JNJFOC-20121016612

PATIENT
  Age: 14 Year
  Sex: Male
  Weight: 53 kg

DRUGS (48)
  1. REMICADE [Suspect]
     Indication: COLITIS ULCERATIVE
     Route: 042
     Dates: start: 20120825
  2. REMICADE [Suspect]
     Indication: COLITIS ULCERATIVE
     Route: 042
     Dates: start: 20111004
  3. REMICADE [Suspect]
     Indication: COLITIS ULCERATIVE
     Route: 042
     Dates: start: 20120331
  4. REMICADE [Suspect]
     Indication: COLITIS ULCERATIVE
     Route: 042
     Dates: start: 20120526
  5. REMICADE [Suspect]
     Indication: COLITIS ULCERATIVE
     Route: 042
     Dates: start: 20120707
  6. REMICADE [Suspect]
     Indication: COLITIS ULCERATIVE
     Route: 042
     Dates: start: 20120206
  7. REMICADE [Suspect]
     Indication: COLITIS ULCERATIVE
     Route: 042
     Dates: start: 20121013
  8. REMICADE [Suspect]
     Indication: COLITIS ULCERATIVE
     Route: 042
     Dates: start: 20111012
  9. REMICADE [Suspect]
     Indication: COLITIS ULCERATIVE
     Route: 042
     Dates: start: 20120106
  10. REMICADE [Suspect]
     Indication: COLITIS ULCERATIVE
     Route: 042
     Dates: start: 20111105
  11. PREDONINE [Concomitant]
     Indication: COLITIS ULCERATIVE
     Route: 048
     Dates: start: 20111210, end: 20111216
  12. PREDONINE [Concomitant]
     Indication: COLITIS ULCERATIVE
     Route: 048
     Dates: start: 20111125, end: 20111209
  13. PREDONINE [Concomitant]
     Indication: COLITIS ULCERATIVE
     Route: 048
     Dates: start: 20111112, end: 20111124
  14. PREDONINE [Concomitant]
     Indication: COLITIS ULCERATIVE
     Dosage: DECREASING DOSAGES FROM 30MG TO 5MG
     Route: 048
     Dates: start: 20111105, end: 20111111
  15. PREDONINE [Concomitant]
     Indication: COLITIS ULCERATIVE
     Route: 048
     Dates: start: 20110925, end: 20111008
  16. PREDONINE [Concomitant]
     Indication: COLITIS ULCERATIVE
     Route: 048
     Dates: start: 20110911, end: 20110924
  17. PREDONINE [Concomitant]
     Indication: COLITIS ULCERATIVE
     Dosage: DECREASING DOSAGED FROM 15MG TO 5 MG
     Route: 048
     Dates: start: 20110824, end: 20110910
  18. PREDONINE [Concomitant]
     Indication: COLITIS ULCERATIVE
     Route: 048
     Dates: start: 20111217, end: 20111231
  19. PREDONINE [Concomitant]
     Indication: COLITIS ULCERATIVE
     Route: 048
     Dates: start: 20120101, end: 20120113
  20. PREDONINE [Concomitant]
     Indication: COLITIS ULCERATIVE
     Dosage: DECREASING DOSAGES FROM 30MG
     Route: 048
     Dates: start: 20120207, end: 20120308
  21. PREDONINE [Concomitant]
     Indication: COLITIS ULCERATIVE
     Route: 048
     Dates: start: 20120309, end: 20120323
  22. PREDONINE [Concomitant]
     Indication: COLITIS ULCERATIVE
     Route: 048
     Dates: start: 20120324, end: 20120414
  23. PREDONINE [Concomitant]
     Indication: COLITIS ULCERATIVE
     Route: 048
     Dates: start: 20120415, end: 20120423
  24. PREDONINE [Concomitant]
     Indication: COLITIS ULCERATIVE
     Route: 048
     Dates: start: 20120424
  25. ASACOL [Concomitant]
     Indication: COLITIS ULCERATIVE
     Route: 048
     Dates: start: 20111013, end: 20111021
  26. ASACOL [Concomitant]
     Indication: COLITIS ULCERATIVE
     Route: 048
     Dates: start: 20111022, end: 20111104
  27. ASACOL [Concomitant]
     Indication: COLITIS ULCERATIVE
     Route: 048
     Dates: start: 20120626, end: 20120719
  28. ASACOL [Concomitant]
     Indication: COLITIS ULCERATIVE
     Route: 048
     Dates: start: 20120720
  29. FLAGYL [Concomitant]
     Indication: PROPHYLAXIS
     Route: 048
     Dates: start: 20111222, end: 20120325
  30. FLAGYL [Concomitant]
     Indication: PROPHYLAXIS
     Route: 048
     Dates: start: 20111019, end: 20111028
  31. LEBENIN [Concomitant]
     Indication: COLITIS ULCERATIVE
     Route: 048
     Dates: start: 20111112
  32. DESONIDE [Concomitant]
     Indication: PROPHYLAXIS
     Route: 042
     Dates: start: 20111115, end: 20111129
  33. IMURAN [Concomitant]
     Indication: COLITIS ULCERATIVE
     Route: 048
     Dates: start: 20120312, end: 20120414
  34. IMURAN [Concomitant]
     Indication: COLITIS ULCERATIVE
     Route: 048
     Dates: start: 20120415, end: 20120624
  35. PENTASA [Concomitant]
     Indication: COLITIS ULCERATIVE
     Route: 048
     Dates: start: 201109, end: 20111012
  36. PENTASA [Concomitant]
     Indication: COLITIS ULCERATIVE
     Route: 048
     Dates: end: 20120625
  37. MIYA-BM [Concomitant]
     Indication: COLITIS ULCERATIVE
     Route: 048
  38. FAMOTIDINE [Concomitant]
     Indication: PROPHYLAXIS
     Dosage: GASRICK
     Route: 048
     Dates: start: 20111102, end: 20111104
  39. VANCOMYCIN [Concomitant]
     Indication: PROPHYLAXIS
     Route: 048
     Dates: start: 20111105, end: 20111114
  40. PARIET [Concomitant]
     Indication: PROPHYLAXIS
     Dosage: DAILY DOSE 10DF
     Route: 048
     Dates: start: 20111105
  41. MUCOSTA [Concomitant]
     Indication: PROPHYLAXIS
     Dosage: DAILY DOSAGE 3TAB
     Route: 048
     Dates: start: 20111112
  42. CIFROQUINON [Concomitant]
     Indication: COLITIS ULCERATIVE
     Route: 048
     Dates: start: 20120614
  43. LEUKERIN [Concomitant]
     Indication: COLITIS ULCERATIVE
     Route: 048
     Dates: start: 20120625
  44. GASTROM [Concomitant]
     Indication: COLITIS ULCERATIVE
     Route: 048
     Dates: start: 20120726
  45. DIFLUCAN [Concomitant]
     Indication: COLITIS ULCERATIVE
     Route: 048
     Dates: start: 20111105, end: 20111211
  46. DIFLUCAN [Concomitant]
     Indication: COLITIS ULCERATIVE
     Route: 048
     Dates: start: 20120614
  47. DIFLUCAN [Concomitant]
     Indication: PROPHYLAXIS
     Route: 048
     Dates: start: 20120614
  48. DIFLUCAN [Concomitant]
     Indication: PROPHYLAXIS
     Route: 048
     Dates: start: 20111105, end: 20111211

REACTIONS (1)
  - Colitis ulcerative [Recovering/Resolving]
